FAERS Safety Report 26119169 (Version 1)
Quarter: 2025Q4

REPORT INFORMATION
  Report Type: Spontaneous
  Country: US (occurrence: US)
  Receive Date: 20251204
  Receipt Date: 20251204
  Transmission Date: 20260117
  Serious: No
  Sender: ACCORD
  Company Number: US-Accord-458749

PATIENT
  Age: 82 Year
  Sex: Female

DRUGS (1)
  1. LEVOTHYROXINE [Suspect]
     Active Substance: LEVOTHYROXINE
     Indication: Product used for unknown indication
     Dosage: STRENGTH: 50MCG

REACTIONS (3)
  - Dry mouth [Unknown]
  - Fatigue [Unknown]
  - Dizziness [Unknown]
